FAERS Safety Report 5543511-8 (Version None)
Quarter: 2007Q4

REPORT INFORMATION
  Report Type: 
  Country: None (occurrence: None)
  Receive Date: 20071210
  Receipt Date: 20061107
  Transmission Date: 20080405
  Serious: No
  Sender: FDA-Public Use
  Company Number: US-AMGEN-KDL193665

PATIENT
  Sex: Male

DRUGS (5)
  1. ENBREL [Suspect]
     Indication: PSORIASIS
     Route: 058
     Dates: start: 20040426
  2. PLAVIX [Concomitant]
  3. METOPROLOL [Concomitant]
  4. PREVACID [Concomitant]
  5. ASPIRIN [Concomitant]

REACTIONS (2)
  - ARTHRITIS INFECTIVE [None]
  - STAPHYLOCOCCAL INFECTION [None]
